FAERS Safety Report 7725413-1 (Version None)
Quarter: 2011Q3

REPORT INFORMATION
  Report Type: 
  Country: None (occurrence: None)
  Receive Date: 20110902
  Receipt Date: 20110829
  Transmission Date: 20111222
  Serious: No
  Sender: FDA-Public Use
  Company Number: US-PFIZER INC-2011201798

PATIENT
  Sex: Female
  Weight: 77.098 kg

DRUGS (6)
  1. NEURONTIN [Suspect]
     Indication: NEURALGIA
  2. NEURONTIN [Suspect]
     Indication: SURGERY
     Dosage: 100 MG, 3X/DAY
     Route: 048
     Dates: start: 20110101
  3. AMBIEN [Suspect]
     Indication: SLEEP DISORDER
     Dosage: UNK, AS NEEDED
     Route: 048
  4. ZOLOFT [Concomitant]
     Dosage: 100 MG, UNK
     Route: 048
  5. NEURONTIN [Suspect]
  6. HYDROCODONE [Concomitant]
     Dosage: 7.5 MG, 2X/DAY
     Route: 048

REACTIONS (4)
  - LETHARGY [None]
  - INSOMNIA [None]
  - WEIGHT INCREASED [None]
  - SWELLING [None]
